FAERS Safety Report 5388150-7 (Version None)
Quarter: 2007Q3

REPORT INFORMATION
  Report Type: 
  Country: None (occurrence: None)
  Receive Date: 20070716
  Receipt Date: 20061222
  Transmission Date: 20080115
  Serious: No
  Sender: FDA-Public Use
  Company Number: A0632410A

PATIENT
  Age: 40 Year
  Sex: Female

DRUGS (1)
  1. TARGET ORIGINAL 4MG [Suspect]
     Indication: ACCIDENTAL EXPOSURE

REACTIONS (4)
  - ACCIDENTAL EXPOSURE [None]
  - GLOSSODYNIA [None]
  - MOUTH ULCERATION [None]
  - ORAL CANDIDIASIS [None]
